FAERS Safety Report 14649295 (Version 2)
Quarter: 2018Q2

REPORT INFORMATION
  Report Type: Spontaneous
  Country: US (occurrence: US)
  Receive Date: 20180316
  Receipt Date: 20180423
  Transmission Date: 20180711
  Serious: No
  Sender: FDA-Public Use
  Company Number: US-PFIZER INC-2018105946

PATIENT
  Age: 61 Year
  Sex: Female

DRUGS (2)
  1. PROTONIX [Interacting]
     Active Substance: PANTOPRAZOLE SODIUM
     Indication: GASTRIC ULCER
     Dosage: UNK
  2. BOSULIF [Suspect]
     Active Substance: BOSUTINIB MONOHYDRATE
     Indication: CHRONIC MYELOID LEUKAEMIA
     Dosage: 200 MG, 2X/DAY
     Route: 048
     Dates: start: 201512

REACTIONS (2)
  - Drug interaction [Unknown]
  - Circumstance or information capable of leading to medication error [Unknown]
